FAERS Safety Report 4594282-3 (Version None)
Quarter: 2005Q1

REPORT INFORMATION
  Report Type: 
  Country: None (occurrence: None)
  Receive Date: 20050301
  Receipt Date: 20040908
  Transmission Date: 20050727
  Serious: No
  Sender: FDA-Public Use
  Company Number: 2004-03814

PATIENT
  Age: 33 Year
  Sex: Male
  Weight: 93.2 kg

DRUGS (5)
  1. VALTREX [Suspect]
     Route: 065
  2. NICOTINE POLACRILEX [Suspect]
     Route: 065
     Dates: start: 20040201, end: 20040801
  3. NICORETTE [Suspect]
     Route: 048
     Dates: start: 20040201, end: 20040801
  4. NICODERM [Suspect]
     Dosage: 21MG UNKNOWN
     Route: 062
     Dates: start: 20040101, end: 20040801
  5. HABITROL [Suspect]
     Dosage: 21MG UNKNOWN
     Route: 062
     Dates: start: 20040101, end: 20040801

REACTIONS (1)
  - DRUG INEFFECTIVE [None]
